FAERS Safety Report 20044922 (Version 3)
Quarter: 2022Q2

REPORT INFORMATION
  Report Type: Report from Study
  Country: US (occurrence: None)
  Receive Date: 20211108
  Receipt Date: 20220525
  Transmission Date: 20220720
  Serious: Yes (Other)
  Sender: FDA-Public Use
  Company Number: US-ROCHE-2694733

PATIENT
  Age: 75 Year
  Sex: Female
  Weight: 56.5 kg

DRUGS (3)
  1. ATEZOLIZUMAB [Suspect]
     Active Substance: ATEZOLIZUMAB
     Indication: Endometrial cancer
     Dosage: 1200 MG IV ON DAY 1 OF EVERY CYCLE (AS PER PROTOCOL).?LAST DOSE PRIOR TO EVENT ONSET DATE: 03/APR/20
     Route: 041
     Dates: start: 20200403
  2. BEVACIZUMAB [Suspect]
     Active Substance: BEVACIZUMAB
     Indication: Endometrial cancer
     Dosage: 15 MG/KG IV ON DAY 1 OF EVERY CYCLE (AS PER PROTOCOL)?MOST RECENT DOSE OF BEVACIZUMAB PRIOR TO EVENT
     Route: 042
     Dates: start: 20200403
  3. RUCAPARIB [Suspect]
     Active Substance: RUCAPARIB
     Indication: Endometrial cancer
     Dosage: RUCAPARIB 600 MG ORALLY TWICE DAILY BY CONTINUOUS DOSING (AS PER PROTOCOL)?DATE OF MOST RECENT DOSE
     Route: 048
     Dates: start: 20200403

REACTIONS (2)
  - Hypertension [Recovered/Resolved]
  - Decreased appetite [Recovered/Resolved]

NARRATIVE: CASE EVENT DATE: 20200425
